FAERS Safety Report 8226474-6 (Version None)
Quarter: 2012Q1

REPORT INFORMATION
  Report Type: 
  Country: None (occurrence: None)
  Receive Date: 20120322
  Receipt Date: 20120312
  Transmission Date: 20120608
  Serious: Yes (Hospitalization, Other)
  Sender: FDA-Public Use
  Company Number: AU-ASTRAZENECA-2012SE02352

PATIENT
  Age: 890 Month
  Sex: Female

DRUGS (2)
  1. CRESTOR [Suspect]
     Indication: BLOOD CHOLESTEROL INCREASED
     Route: 048
     Dates: start: 20111111, end: 20111118
  2. CRESTOR [Suspect]
     Route: 048
     Dates: start: 20120112

REACTIONS (4)
  - GASTRIC HAEMORRHAGE [None]
  - DRY MOUTH [None]
  - MALAISE [None]
  - DIVERTICULITIS [None]
